FAERS Safety Report 21310018 (Version 1)
Quarter: 2022Q3

REPORT INFORMATION
  Report Type: Spontaneous
  Country: US (occurrence: US)
  Receive Date: 20220909
  Receipt Date: 20220909
  Transmission Date: 20221027
  Serious: Yes (Other)
  Sender: FDA-Public Use
  Company Number: US-MLMSERVICE-20220824-3751491-1

PATIENT
  Age: 58 Year
  Sex: Female

DRUGS (4)
  1. CLOBETASOL PROPIONATE [Suspect]
     Active Substance: CLOBETASOL PROPIONATE
     Indication: Evidence based treatment
     Dosage: UNK
     Route: 061
  2. PREDNISONE [Suspect]
     Active Substance: PREDNISONE
     Indication: Pyoderma gangrenosum
     Dosage: 60 MILLIGRAM, ONCE A DAY
     Route: 048
  3. MUPIROCIN [Concomitant]
     Active Substance: MUPIROCIN
     Indication: Evidence based treatment
     Dosage: UNK
     Route: 065
  4. VANCOMYCIN [Concomitant]
     Active Substance: VANCOMYCIN
     Indication: Evidence based treatment
     Dosage: UNK

REACTIONS (1)
  - Pancreatitis [Unknown]
